FAERS Safety Report 7703275-6 (Version None)
Quarter: 2011Q3

REPORT INFORMATION
  Report Type: 
  Country: None (occurrence: None)
  Receive Date: 20110823
  Receipt Date: 20110815
  Transmission Date: 20111222
  Serious: Yes (Death)
  Sender: FDA-Public Use
  Company Number: JP-BRISTOL-MYERS SQUIBB COMPANY-15972763

PATIENT
  Age: 38 Year
  Sex: Male

DRUGS (2)
  1. IRINOTECAN HCL [Suspect]
     Indication: METASTATIC GASTRIC CANCER
  2. CISPLATIN [Suspect]
     Indication: METASTATIC GASTRIC CANCER
     Dosage: TAKEN ON DAYS 1-4 AND 15-21

REACTIONS (2)
  - NEOPLASM MALIGNANT [None]
  - RESPIRATORY FAILURE [None]
